FAERS Safety Report 24927570 (Version 5)
Quarter: 2025Q2

REPORT INFORMATION
  Report Type: Spontaneous
  Country: US (occurrence: US)
  Receive Date: 20250205
  Receipt Date: 20250624
  Transmission Date: 20250717
  Serious: Yes (Other)
  Sender: APELLIS PHARMACEUTICALS
  Company Number: US-APELLIS-2025-APL-0000231

PATIENT

DRUGS (15)
  1. SYFOVRE [Suspect]
     Active Substance: PEGCETACOPLAN
     Indication: Dry age-related macular degeneration
     Route: 031
     Dates: end: 20241217
  2. SYFOVRE [Suspect]
     Active Substance: PEGCETACOPLAN
     Indication: Dry age-related macular degeneration
     Route: 031
     Dates: start: 20240410, end: 20241217
  3. SYFOVRE [Suspect]
     Active Substance: PEGCETACOPLAN
     Route: 031
     Dates: start: 20240507, end: 20241217
  4. THERATEARS [Concomitant]
     Active Substance: CARBOXYMETHYLCELLULOSE SODIUM
     Indication: Product used for unknown indication
     Dosage: 1 GTT BID OU
     Route: 047
  5. SYSTANE ULTRA [Concomitant]
     Active Substance: POLYETHYLENE GLYCOL 400\PROPYLENE GLYCOL
     Indication: Product used for unknown indication
     Dosage: 1 GTT BID OU
  6. ATORVASTATIN CALCIUM [Concomitant]
     Active Substance: ATORVASTATIN CALCIUM
     Indication: Product used for unknown indication
     Dosage: 20 MG ORAL TABLET QDAY
     Route: 048
  7. LOSARTAN POTASSIUM [Concomitant]
     Active Substance: LOSARTAN POTASSIUM
     Indication: Product used for unknown indication
     Dosage: 100 MG ORAL TABLET QDAY
     Route: 048
  8. WARFARIN SODIUM [Concomitant]
     Active Substance: WARFARIN SODIUM
     Indication: Product used for unknown indication
     Dosage: 8 MG ORAL TABLET QDAY
     Route: 048
  9. OXCARBAZEPINE [Concomitant]
     Active Substance: OXCARBAZEPINE
     Indication: Product used for unknown indication
     Dosage: 600 MG ORAL TABLET BID
     Route: 048
  10. PROPARACAINE [Concomitant]
     Active Substance: PROPARACAINE
  11. PHENYLEPHRINE [Concomitant]
     Active Substance: PHENYLEPHRINE
  12. TROPICAMIDE [Concomitant]
     Active Substance: TROPICAMIDE
  13. DIETARY SUPPLEMENT\RESVERATROL [Concomitant]
     Active Substance: DIETARY SUPPLEMENT\RESVERATROL
     Indication: Nutritional supplementation
     Dosage: 100MG BID
  14. Quercisorb qr [Concomitant]
     Indication: Nutritional supplementation
     Dosage: 100MG BID
  15. Longvida [Concomitant]
     Indication: Nutritional supplementation
     Dosage: 1000MG BID

REACTIONS (11)
  - Endophthalmitis [Unknown]
  - Foreign body sensation in eyes [Unknown]
  - Visual impairment [Recovering/Resolving]
  - Visual impairment [Recovering/Resolving]
  - Optic neuritis [Recovering/Resolving]
  - Noninfective chorioretinitis [Recovering/Resolving]
  - Conjunctival haemorrhage [Recovered/Resolved]
  - COVID-19 [Unknown]
  - Vision blurred [Unknown]
  - Ocular hypertension [Unknown]
  - Retinal artery embolism [Unknown]
